FAERS Safety Report 10513286 (Version 1)
Quarter: 2014Q4

REPORT INFORMATION
  Report Type: Spontaneous
  Country: GB (occurrence: GB)
  Receive Date: 20141013
  Receipt Date: 20141013
  Transmission Date: 20150528
  Serious: Yes (Other)
  Sender: FDA-Public Use
  Company Number: GB-JNJFOC-20140926782

PATIENT
  Age: 19 Year
  Sex: Male

DRUGS (1)
  1. OXYBUTYNIN [Suspect]
     Active Substance: OXYBUTYNIN
     Indication: URGE INCONTINENCE
     Route: 048
     Dates: start: 20140804, end: 20140816

REACTIONS (5)
  - Dry mouth [Recovered/Resolved]
  - Decreased appetite [Recovered/Resolved]
  - Diarrhoea [Recovered/Resolved]
  - Dizziness [Recovered/Resolved]
  - Panic attack [Recovered/Resolved]

NARRATIVE: CASE EVENT DATE: 20140804
